FAERS Safety Report 4504100-7 (Version None)
Quarter: 2004Q4

REPORT INFORMATION
  Report Type: 
  Country: None (occurrence: None)
  Receive Date: 20041115
  Receipt Date: 20041101
  Transmission Date: 20050328
  Serious: Yes (Hospitalization)
  Sender: FDA-Public Use
  Company Number: MC200400723

PATIENT
  Age: 68 Year
  Sex: Male

DRUGS (1)
  1. ANGIOMAX [Suspect]

REACTIONS (3)
  - CATHETER SITE HAEMORRHAGE [None]
  - PROCEDURAL COMPLICATION [None]
  - VASCULAR PSEUDOANEURYSM [None]
